FAERS Safety Report 21408396 (Version 2)
Quarter: 2022Q4

REPORT INFORMATION
  Report Type: Report from Study
  Country: CA (occurrence: CA)
  Receive Date: 20221004
  Receipt Date: 20221012
  Transmission Date: 20230113
  Serious: Yes (Other)
  Sender: FDA-Public Use
  Company Number: CA-JNJFOC-20220958680

PATIENT
  Age: 64 Year
  Sex: Female
  Weight: 86 kg

DRUGS (2)
  1. JANSSEN COVID-19 VACCINE [Suspect]
     Active Substance: AD26.COV2.S
     Indication: COVID-19 prophylaxis
     Dosage: DOSE 3
     Route: 065
     Dates: start: 20220830, end: 20220830
  2. TREMFYA [Suspect]
     Active Substance: GUSELKUMAB
     Indication: Product used for unknown indication
     Route: 058
     Dates: start: 20220519

REACTIONS (3)
  - Inflammation [Recovered/Resolved]
  - COVID-19 immunisation [Unknown]
  - Off label use [Unknown]

NARRATIVE: CASE EVENT DATE: 20220830
